FAERS Safety Report 21326598 (Version 1)
Quarter: 2022Q3

REPORT INFORMATION
  Report Type: Spontaneous
  Country: CH (occurrence: CH)
  Receive Date: 20220913
  Receipt Date: 20220913
  Transmission Date: 20221027
  Serious: Yes (Death, Hospitalization)
  Sender: FDA-Public Use
  Company Number: None

PATIENT
  Age: 64 Year
  Sex: Female

DRUGS (15)
  1. XELODA [Suspect]
     Active Substance: CAPECITABINE
     Indication: Invasive breast carcinoma
     Route: 048
     Dates: start: 202109, end: 20220823
  2. BRIVUDINE [Suspect]
     Active Substance: BRIVUDINE
     Indication: Herpes zoster
     Dosage: 125 MG
     Route: 065
     Dates: start: 20220816, end: 20220820
  3. ISRADIPINE [Concomitant]
     Active Substance: ISRADIPINE
     Route: 042
  4. DOMPERIDONE [Concomitant]
     Active Substance: DOMPERIDONE
     Route: 042
  5. MOVICOL [Concomitant]
     Active Substance: POLYETHYLENE GLYCOL 3350\POTASSIUM CHLORIDE\SODIUM BICARBONATE\SODIUM CHLORIDE
  6. ACETAMINOPHEN [Concomitant]
     Active Substance: ACETAMINOPHEN
     Route: 048
  7. ESCITALOPRAM [Concomitant]
     Active Substance: ESCITALOPRAM OXALATE
  8. LEVOTHYROXINE [Concomitant]
     Active Substance: LEVOTHYROXINE
  9. RISPERIDONE [Concomitant]
     Active Substance: RISPERIDONE
  10. NYSTATIN [Concomitant]
     Active Substance: NYSTATIN
  11. BUPRENORPHINE [Concomitant]
     Active Substance: BUPRENORPHINE
  12. ZOLPIDEM [Concomitant]
     Active Substance: ZOLPIDEM TARTRATE
  13. FUSIDIC ACID [Concomitant]
     Active Substance: FUSIDIC ACID
  14. CODEINE [Concomitant]
     Active Substance: CODEINE
  15. CALCIUM\CHOLECALCIFEROL [Concomitant]
     Active Substance: CALCIUM\CHOLECALCIFEROL

REACTIONS (6)
  - Agranulocytosis [Fatal]
  - Drug interaction [Unknown]
  - Confusional state [Fatal]
  - Mucosal inflammation [Not Recovered/Not Resolved]
  - Drug hypersensitivity [Unknown]
  - Thrombocytopenia [Not Recovered/Not Resolved]

NARRATIVE: CASE EVENT DATE: 20220816
